FAERS Safety Report 17823509 (Version 1)
Quarter: 2020Q2

REPORT INFORMATION
  Report Type: Spontaneous
  Country: US (occurrence: US)
  Receive Date: 20200522
  Receipt Date: 20200522
  Transmission Date: 20200714
  Serious: Yes (Other)
  Sender: FDA-Public Use
  Company Number: None

PATIENT
  Age: 2 Year
  Sex: Male

DRUGS (1)
  1. BUDESONIDE. [Suspect]
     Active Substance: BUDESONIDE
     Dosage: ?          OTHER ROUTE:NEBULIZED?
     Dates: start: 20190618, end: 20200213

REACTIONS (4)
  - Wheezing [None]
  - Middle insomnia [None]
  - Product substitution issue [None]
  - Cough [None]

NARRATIVE: CASE EVENT DATE: 20200213
